FAERS Safety Report 12422750 (Version 2)
Quarter: 2016Q2

REPORT INFORMATION
  Report Type: Report from Study
  Country: TW (occurrence: TW)
  Receive Date: 20160601
  Receipt Date: 20160613
  Transmission Date: 20160815
  Serious: Yes (Other)
  Sender: FDA-Public Use
  Company Number: PHHY2016TW071933

PATIENT
  Age: 59 Year
  Sex: Male
  Weight: 66.5 kg

DRUGS (5)
  1. ACETAMINOPHEN. [Concomitant]
     Active Substance: ACETAMINOPHEN
     Indication: PAIN
     Dosage: 500 MG, UNK
     Route: 065
     Dates: start: 20160504, end: 20160510
  2. PARMASON [Concomitant]
     Indication: ORAL INFECTION
     Dosage: 2 MG/ML, UNK
     Route: 065
     Dates: start: 20160504, end: 20160510
  3. LIDOCAINE VISCOUS [Concomitant]
     Active Substance: LIDOCAINE HYDROCHLORIDE
     Indication: LOCAL ANAESTHESIA
     Dosage: 2 PERCENT,500ML
     Route: 065
     Dates: start: 20160510, end: 20160510
  4. SIMETHICON [Concomitant]
     Indication: HYPERCHLORHYDRIA
     Dosage: 500 ML, UNK
     Route: 065
     Dates: start: 20160510, end: 20160510
  5. EXJADE [Suspect]
     Active Substance: DEFERASIROX
     Indication: MYELODYSPLASTIC SYNDROME
     Dosage: 1500 MG, QD
     Route: 048
     Dates: start: 20160323

REACTIONS (8)
  - Oesophageal candidiasis [Recovering/Resolving]
  - Gastric ulcer [Unknown]
  - Gastric disorder [Unknown]
  - Leukaemia [Unknown]
  - Dysphagia [Unknown]
  - Gastrooesophageal reflux disease [Unknown]
  - Squamous cell carcinoma [Unknown]
  - Hiatus hernia [Unknown]

NARRATIVE: CASE EVENT DATE: 20160415
